FAERS Safety Report 12780018 (Version 1)
Quarter: 2016Q3

REPORT INFORMATION
  Report Type: Spontaneous
  Country: US (occurrence: US)
  Receive Date: 20160925
  Receipt Date: 20160925
  Transmission Date: 20161109
  Serious: Yes (Other)
  Sender: FDA-Public Use
  Company Number: None

PATIENT
  Age: 60 Year
  Sex: Female
  Weight: 123.75 kg

DRUGS (10)
  1. MUPIROCIN OINTMENT USP, 2% [Suspect]
     Active Substance: MUPIROCIN
     Indication: SKIN DISORDER
     Dosage: OTHER STRENGTH:;OTHER DOSE:GRAMS;OTHER FREQUENCY:;OTHER ROUTE:
     Route: 061
     Dates: start: 20160914, end: 20160918
  2. PHENTAMINE [Concomitant]
  3. BUTRANS [Concomitant]
     Active Substance: BUPRENORPHINE
  4. SKELAXIN [Concomitant]
     Active Substance: METAXALONE
  5. HYDROCODONE [Concomitant]
     Active Substance: HYDROCODONE
  6. LEXAPRO [Concomitant]
     Active Substance: ESCITALOPRAM OXALATE
  7. IBUPROFEN. [Concomitant]
     Active Substance: IBUPROFEN
  8. POLYETHYLENE GLYCOL 3350. [Concomitant]
     Active Substance: POLYETHYLENE GLYCOL 3350
  9. VITAMIN B12 [Concomitant]
     Active Substance: CYANOCOBALAMIN
  10. FLUOCINOMIDE CREAM USP [Concomitant]

REACTIONS (5)
  - Influenza [None]
  - Diarrhoea [None]
  - Abdominal pain upper [None]
  - Panic attack [None]
  - Depression [None]

NARRATIVE: CASE EVENT DATE: 20160922
